FAERS Safety Report 18924204 (Version 1)
Quarter: 2021Q1

REPORT INFORMATION
  Report Type: Spontaneous
  Country: US (occurrence: US)
  Receive Date: 20210222
  Receipt Date: 20210222
  Transmission Date: 20210420
  Serious: No
  Sender: FDA-Public Use
  Company Number: US-TEVA-2019-US-1066044

PATIENT

DRUGS (1)
  1. CICLOSPORINE [Suspect]
     Active Substance: CYCLOSPORINE
     Dosage: FORM STRENGTH: 100 MG IN 1 ML.
     Route: 065

REACTIONS (1)
  - Therapeutic product effect decreased [Unknown]
